FAERS Safety Report 12774311 (Version 2)
Quarter: 2016Q4

REPORT INFORMATION
  Report Type: Spontaneous
  Country: US (occurrence: US)
  Receive Date: 20160923
  Receipt Date: 20161025
  Transmission Date: 20170207
  Serious: No
  Sender: FDA-Public Use
  Company Number: US-PFIZER INC-2016442777

PATIENT
  Age: 62 Year
  Sex: Male
  Weight: 143 kg

DRUGS (2)
  1. SUTENT [Suspect]
     Active Substance: SUNITINIB MALATE
     Indication: GASTROINTESTINAL STROMAL TUMOUR
  2. SUTENT [Suspect]
     Active Substance: SUNITINIB MALATE
     Indication: GASTRIC CANCER
     Dosage: 50 MG, CYCLIC (D1-D28, Q 42 D)
     Route: 048
     Dates: start: 20160908

REACTIONS (7)
  - Hyperphagia [Unknown]
  - Pollakiuria [Unknown]
  - Vomiting [Unknown]
  - Diarrhoea [Unknown]
  - Dry skin [Unknown]
  - Nausea [Unknown]
  - Hypersomnia [Unknown]
